FAERS Safety Report 6666545-9 (Version None)
Quarter: 2010Q2

REPORT INFORMATION
  Report Type: 
  Country: None (occurrence: None)
  Receive Date: 20100402
  Receipt Date: 20100331
  Transmission Date: 20101027
  Serious: Yes (Hospitalization)
  Sender: FDA-Public Use
  Company Number: IT-MERCK-1002ITA00043

PATIENT
  Age: 80 Year
  Sex: Female

DRUGS (8)
  1. MODURETIC 5-50 [Suspect]
     Route: 048
     Dates: start: 20000210, end: 20091229
  2. METFORMIN [Suspect]
     Indication: DIABETES MELLITUS
     Route: 048
     Dates: start: 20000210, end: 20091229
  3. LEVOTHYROXINE SODIUM [Suspect]
     Route: 048
     Dates: start: 20000210, end: 20091229
  4. FUROSEMIDE [Suspect]
     Route: 048
     Dates: start: 20000210, end: 20091229
  5. POTASSIUM CHLORIDE [Suspect]
     Route: 048
     Dates: start: 20000210, end: 20091229
  6. LANSOPRAZOLE [Concomitant]
     Route: 048
     Dates: start: 20000210, end: 20091229
  7. ISOSORBIDE DINITRATE [Concomitant]
     Indication: MYOCARDIAL ISCHAEMIA
     Route: 048
     Dates: start: 20000210, end: 20091229
  8. INSULIN [Suspect]
     Route: 065

REACTIONS (2)
  - HYPOGLYCAEMIA [None]
  - SOMNOLENCE [None]
